FAERS Safety Report 5628787-0 (Version None)
Quarter: 2008Q1

REPORT INFORMATION
  Report Type: 
  Country: None (occurrence: None)
  Receive Date: 20080214
  Receipt Date: 20080131
  Transmission Date: 20080703
  Serious: Yes (Hospitalization)
  Sender: FDA-Public Use
  Company Number: 2007US002743

PATIENT
  Age: 55 Year
  Sex: Male
  Weight: 90.7 kg

DRUGS (1)
  1. AMEVIVE [Suspect]
     Indication: PSORIASIS
     Dosage: 15 MG WEEKLY INTRAMUSCULAR
     Route: 030
     Dates: start: 20031114

REACTIONS (3)
  - HEADACHE [None]
  - LUMBAR SPINAL STENOSIS [None]
  - SPINAL DECOMPRESSION [None]
